FAERS Safety Report 6215364-6 (Version None)
Quarter: 2009Q2

REPORT INFORMATION
  Report Type: 
  Country: None (occurrence: None)
  Receive Date: 20090604
  Receipt Date: 20090525
  Transmission Date: 20091009
  Serious: Yes (Hospitalization, Other)
  Sender: FDA-Public Use
  Company Number: US-BAXTER-2009BH009036

PATIENT
  Age: 25 Year
  Sex: Female

DRUGS (2)
  1. DURAMORPH PF [Suspect]
     Indication: SPINAL ANAESTHESIA
     Route: 037
     Dates: start: 20090521, end: 20090521
  2. FENTANYL CITRATE [Suspect]
     Indication: SPINAL ANAESTHESIA
     Route: 037
     Dates: start: 20090521, end: 20090521

REACTIONS (3)
  - DRUG EXPOSURE DURING PREGNANCY [None]
  - MENINGITIS BACTERIAL [None]
  - UNRESPONSIVE TO STIMULI [None]
